FAERS Safety Report 14123458 (Version 1)
Quarter: 2017Q4

REPORT INFORMATION
  Report Type: Spontaneous
  Country: US (occurrence: US)
  Receive Date: 20171025
  Receipt Date: 20171025
  Transmission Date: 20180321
  Serious: No
  Sender: FDA-Public Use
  Company Number: US-PERRIGO-17US002371

PATIENT
  Age: 65 Year
  Sex: Female

DRUGS (1)
  1. NICOTINE POLACRILEX [Suspect]
     Active Substance: NICOTINE
     Indication: SMOKING CESSATION THERAPY
     Dosage: 2 MG, 20 TIMES DAILY
     Route: 002
     Dates: start: 2007

REACTIONS (1)
  - Nicotine dependence [Unknown]

NARRATIVE: CASE EVENT DATE: 2007
